FAERS Safety Report 9653402 (Version 1)
Quarter: 2013Q4

REPORT INFORMATION
  Report Type: Spontaneous
  Country: US (occurrence: None)
  Receive Date: 20131028
  Receipt Date: 20131028
  Transmission Date: 20140711
  Serious: No
  Sender: FDA-Public Use
  Company Number: None

PATIENT
  Age: 54 Year
  Sex: Female
  Weight: 63.05 kg

DRUGS (2)
  1. DICLOFENAC [Suspect]
     Indication: PAIN IN EXTREMITY
     Route: 048
     Dates: start: 20131018, end: 20131021
  2. DICLOFENAC [Suspect]
     Indication: LOCAL SWELLING
     Route: 048
     Dates: start: 20131018, end: 20131021

REACTIONS (3)
  - Nasal congestion [None]
  - Dyspnoea [None]
  - Nasal disorder [None]
